FAERS Safety Report 7646171-5 (Version None)
Quarter: 2011Q3

REPORT INFORMATION
  Report Type: 
  Country: None (occurrence: None)
  Receive Date: 20110801
  Receipt Date: 20110720
  Transmission Date: 20111222
  Serious: No
  Sender: FDA-Public Use
  Company Number: US-BIOGENIDEC-2011BI027150

PATIENT
  Sex: Male

DRUGS (2)
  1. TYSABRI [Suspect]
     Indication: MULTIPLE SCLEROSIS
     Route: 042
     Dates: start: 20110624
  2. TYSABRI [Suspect]
     Route: 042
     Dates: start: 20080617, end: 20091201

REACTIONS (1)
  - MULTIPLE SCLEROSIS RELAPSE [None]
